FAERS Safety Report 5422390-3 (Version None)
Quarter: 2007Q3

REPORT INFORMATION
  Report Type: 
  Country: None (occurrence: None)
  Receive Date: 20070822
  Receipt Date: 20070817
  Transmission Date: 20080115
  Serious: Yes (Other)
  Sender: FDA-Public Use
  Company Number: A0671287A

PATIENT
  Age: 69 Year
  Sex: Female

DRUGS (5)
  1. ADVAIR DISKUS 100/50 [Suspect]
     Indication: CHRONIC OBSTRUCTIVE PULMONARY DISEASE
     Dosage: 1PUFF TWICE PER DAY
     Route: 055
     Dates: start: 20010401
  2. PROVENTIL [Concomitant]
  3. SYNTHROID [Concomitant]
  4. ZOCOR [Concomitant]
  5. LISINOPRIL [Concomitant]

REACTIONS (5)
  - CATARACT [None]
  - INTRAOCULAR PRESSURE INCREASED [None]
  - PHOTOPSIA [None]
  - VISION BLURRED [None]
  - VISUAL DISTURBANCE [None]
